FAERS Safety Report 10683242 (Version 1)
Quarter: 2014Q4

REPORT INFORMATION
  Report Type: Spontaneous
  Country: IT (occurrence: IT)
  Receive Date: 20141230
  Receipt Date: 20141230
  Transmission Date: 20150529
  Serious: Yes (Other)
  Sender: FDA-Public Use
  Company Number: IT-BAYER-2014-189271

PATIENT
  Age: 43 Year
  Sex: Male

DRUGS (4)
  1. CLAMOXYL [AMOXICILLIN,CLAVULANATE POTASSIUM] [Concomitant]
  2. VITAMIN E [Concomitant]
     Active Substance: .ALPHA.-TOCOPHEROL
  3. CETRAXAL [Suspect]
     Active Substance: CIPROFLOXACIN
     Dosage: UNK
  4. CETRAXAL [Suspect]
     Active Substance: CIPROFLOXACIN
     Dosage: 1 DF, ONCE
     Route: 048
     Dates: start: 20140409, end: 20140409

REACTIONS (3)
  - Dyspnoea [Recovering/Resolving]
  - Asthenia [Recovering/Resolving]
  - Presyncope [Recovering/Resolving]

NARRATIVE: CASE EVENT DATE: 20140409
